FAERS Safety Report 11245630 (Version 3)
Quarter: 2015Q4

REPORT INFORMATION
  Report Type: Other
  Country: CA (occurrence: CA)
  Receive Date: 20150707
  Receipt Date: 20151013
  Transmission Date: 20160304
  Serious: Yes (Death, Other)
  Sender: FDA-Public Use
  Company Number: CA-NAPPMUNDI-DEU-2015-0016932

PATIENT
  Age: 64 Year
  Sex: Male

DRUGS (10)
  1. PREGABALIN. [Interacting]
     Active Substance: PREGABALIN
     Indication: PELVIC PAIN
  2. DEXAMETHASONE. [Suspect]
     Active Substance: DEXAMETHASONE
     Indication: BACK PAIN
     Dosage: 16 MG, DAILY
     Route: 048
  3. ACETAMINOPHEN. [Suspect]
     Active Substance: ACETAMINOPHEN
     Indication: PELVIC PAIN
  4. HYDROMORPHONE HCL [Interacting]
     Active Substance: HYDROMORPHONE HYDROCHLORIDE
     Indication: BACK PAIN
     Dosage: 30 MG, DAILY
     Route: 051
  5. METHADONE [Interacting]
     Active Substance: METHADONE HYDROCHLORIDE
     Indication: BACK PAIN
     Dosage: 24 MG, DAILY
     Route: 048
     Dates: start: 201306
  6. METHADONE [Interacting]
     Active Substance: METHADONE HYDROCHLORIDE
     Indication: PELVIC PAIN
  7. DEXAMETHASONE. [Suspect]
     Active Substance: DEXAMETHASONE
     Indication: PELVIC PAIN
     Dosage: 0.75 MG, DAILY
     Route: 051
     Dates: start: 201306
  8. ACETAMINOPHEN. [Suspect]
     Active Substance: ACETAMINOPHEN
     Indication: BACK PAIN
     Dosage: 3 G, DAILY
     Route: 065
     Dates: start: 201306
  9. PREGABALIN. [Interacting]
     Active Substance: PREGABALIN
     Indication: BACK PAIN
     Dosage: 150 MG, DAILY
     Route: 065
  10. HYDROMORPHONE HCL [Interacting]
     Active Substance: HYDROMORPHONE HYDROCHLORIDE
     Indication: PELVIC PAIN
     Dosage: 3 MCG/ML, Q24H
     Route: 037
     Dates: start: 201306

REACTIONS (5)
  - Drug interaction [Recovered/Resolved]
  - Hallucination [Recovered/Resolved]
  - Neoplasm malignant [Fatal]
  - Delirium [Recovered/Resolved]
  - Drug ineffective [Recovering/Resolving]

NARRATIVE: CASE EVENT DATE: 2010
